FAERS Safety Report 5162114-0 (Version None)
Quarter: 2006Q4

REPORT INFORMATION
  Report Type: 
  Country: None (occurrence: None)
  Receive Date: 20061121
  Receipt Date: 20061114
  Transmission Date: 20070319
  Serious: No
  Sender: FDA-Public Use
  Company Number: TAP2006Q01893

PATIENT
  Age: 94 Year
  Sex: Male

DRUGS (3)
  1. LUPRON DEPOT-4 [Suspect]
     Indication: PROSTATE CANCER
     Dosage: 30 MG, 1 IN 1 4 M, INTRAMUSCULAR
     Route: 030
     Dates: start: 20041001
  2. VENTOLIN INHALER (SALBUTAMOL) [Concomitant]
  3. THEO-DUR [Concomitant]

REACTIONS (1)
  - CATARACT OPERATION [None]
